FAERS Safety Report 8350111-3 (Version None)
Quarter: 2012Q2

REPORT INFORMATION
  Report Type: 
  Country: None (occurrence: None)
  Receive Date: 20120510
  Receipt Date: 20120507
  Transmission Date: 20120825
  Serious: Yes (Life-Threatening, Hospitalization, Other)
  Sender: FDA-Public Use
  Company Number: JP-ROCHE-1056555

PATIENT
  Sex: Female

DRUGS (20)
  1. CELLCEPT [Suspect]
     Route: 048
     Dates: start: 20070517, end: 20070617
  2. TACROLIMUS [Suspect]
     Indication: PROPHYLAXIS AGAINST TRANSPLANT REJECTION
     Dosage: 2-14MG
     Route: 048
     Dates: start: 20070502
  3. PREDNISOLONE [Suspect]
     Dosage: 5-10MG
     Route: 048
     Dates: start: 20070504
  4. LANTUS [Concomitant]
     Indication: TYPE 1 DIABETES MELLITUS
     Route: 058
     Dates: start: 20070701
  5. NOVOLIN R [Concomitant]
     Indication: TYPE 1 DIABETES MELLITUS
     Dosage: 4-12IU
     Route: 058
  6. CELLCEPT [Suspect]
     Route: 048
     Dates: start: 20070708, end: 20080201
  7. CELLCEPT [Suspect]
     Route: 048
  8. INSULIN [Concomitant]
     Indication: TYPE 1 DIABETES MELLITUS
     Dosage: DOSAGE IS UNCERTAIN.
     Route: 058
     Dates: start: 19730101
  9. LANSOPRAZOLE [Concomitant]
     Route: 048
     Dates: start: 20070719
  10. MUROMONAB-CD3 [Suspect]
     Indication: RENAL AND PANCREAS TRANSPLANT REJECTION
     Dosage: DOSAGE IS UNCERTAIN.
     Route: 042
     Dates: start: 20071201, end: 20071201
  11. TACROLIMUS [Suspect]
  12. TACROLIMUS [Concomitant]
     Indication: PROPHYLAXIS AGAINST TRANSPLANT REJECTION
     Route: 048
  13. SPANIDIN [Concomitant]
     Route: 041
     Dates: start: 20071201, end: 20071201
  14. CELLCEPT [Suspect]
     Route: 048
     Dates: start: 20070618, end: 20070620
  15. PREDNISOLONE [Suspect]
     Indication: PROPHYLAXIS AGAINST TRANSPLANT REJECTION
     Route: 042
     Dates: start: 20070427, end: 20070503
  16. NOVORAPID [Concomitant]
     Indication: TYPE 1 DIABETES MELLITUS
     Dosage: 4-18 UNITS
     Route: 058
     Dates: start: 20070527
  17. CELLCEPT [Suspect]
     Indication: PROPHYLAXIS AGAINST TRANSPLANT REJECTION
     Route: 048
     Dates: start: 20070502, end: 20070510
  18. CELLCEPT [Suspect]
     Route: 048
     Dates: start: 20070621, end: 20070622
  19. CELLCEPT [Suspect]
     Route: 048
     Dates: start: 20080201, end: 20081001
  20. SPANIDIN [Concomitant]
     Indication: RENAL AND PANCREAS TRANSPLANT REJECTION
     Route: 041
     Dates: start: 20070501, end: 20070501

REACTIONS (6)
  - POST TRANSPLANT LYMPHOPROLIFERATIVE DISORDER [None]
  - CEREBELLAR HAEMORRHAGE [None]
  - POLYOMAVIRUS-ASSOCIATED NEPHROPATHY [None]
  - ANAEMIA [None]
  - GASTRIC CANCER STAGE 0 [None]
  - CYTOMEGALOVIRUS INFECTION [None]
